FAERS Safety Report 6609600-1 (Version None)
Quarter: 2010Q1

REPORT INFORMATION
  Report Type: 
  Country: None (occurrence: None)
  Receive Date: 20100224
  Receipt Date: 20100209
  Transmission Date: 20100710
  Serious: Yes (Hospitalization)
  Sender: FDA-Public Use
  Company Number: DSA_42626_2010

PATIENT
  Age: 72 Year
  Sex: Male

DRUGS (7)
  1. DILTIAZEM HYDROCHLORIDE [Suspect]
     Indication: DRUG USE FOR UNKNOWN INDICATION
     Dosage: (1 DF ORAL)
     Route: 048
     Dates: start: 20100114, end: 20100125
  2. VOLTARENE /00372302/ [Concomitant]
  3. KARDEGIC /00002703/ [Concomitant]
  4. PRAVASTATIN SODIUM [Concomitant]
  5. OMEPRAZOLE [Concomitant]
  6. STILNOX /00914902/ [Concomitant]
  7. UNICORDIUM [Concomitant]

REACTIONS (2)
  - ACUTE GENERALISED EXANTHEMATOUS PUSTULOSIS [None]
  - PENILE OEDEMA [None]
